FAERS Safety Report 8446910-X (Version None)
Quarter: 2012Q2

REPORT INFORMATION
  Report Type: 
  Country: None (occurrence: None)
  Receive Date: 20120612
  Receipt Date: 20120612
  Transmission Date: 20120825
  Serious: Yes (Other)
  Sender: FDA-Public Use
  Company Number: None

PATIENT
  Sex: Male

DRUGS (1)
  1. DIVALPROEX SODIUM [Suspect]
     Indication: EPILEPSY
     Dosage: 125MG 1 TAB DAILY PO 250 MG 1 DABS QD PO
     Route: 048
     Dates: start: 20090101, end: 20100101

REACTIONS (1)
  - CONVULSION [None]
